FAERS Safety Report 22275206 (Version 1)
Quarter: 2023Q2

REPORT INFORMATION
  Report Type: Spontaneous
  Country: US (occurrence: None)
  Receive Date: 20230501
  Receipt Date: 20230501
  Transmission Date: 20230722
  Serious: Yes (Hospitalization)
  Sender: FDA-Public Use
  Company Number: None

PATIENT
  Age: 59 Year
  Sex: Female
  Weight: 43.09 kg

DRUGS (27)
  1. VERZENIO [Suspect]
     Active Substance: ABEMACICLIB
     Indication: Breast cancer female
     Dosage: FREQUENCY : TWICE A DAY;?
     Route: 048
  2. CELECOXIB [Concomitant]
     Active Substance: CELECOXIB
  3. CHOLECALCIFEROL [Concomitant]
     Active Substance: CHOLECALCIFEROL
  4. DICLOFENAC [Concomitant]
     Active Substance: DICLOFENAC
  5. FASLODEX [Concomitant]
     Active Substance: FULVESTRANT
  6. FENTANYL [Concomitant]
     Active Substance: FENTANYL
  7. FERROUS SULFATE [Concomitant]
     Active Substance: FERROUS SULFATE
  8. GABAPENTIN [Concomitant]
     Active Substance: GABAPENTIN
  9. HYDROMORPHONE [Concomitant]
     Active Substance: HYDROMORPHONE
  10. KISQALI [Concomitant]
     Active Substance: RIBOCICLIB
  11. LACTULOSE [Concomitant]
     Active Substance: LACTULOSE
  12. LASIX [Concomitant]
     Active Substance: FUROSEMIDE
  13. LIDOCAINE [Concomitant]
     Active Substance: LIDOCAINE
  14. MELATONIN [Concomitant]
     Active Substance: MELATONIN
  15. METOPROLOL [Concomitant]
     Active Substance: METOPROLOL
  16. MULTIVITAMIN PLUS MINERALS [Concomitant]
  17. NALOXONE [Concomitant]
     Active Substance: NALOXONE
  18. NEURONTIN [Concomitant]
     Active Substance: GABAPENTIN
  19. PEPCID [Concomitant]
     Active Substance: FAMOTIDINE
  20. PROCHOLORPERAZINE [Concomitant]
  21. SENNA PLUS [Concomitant]
     Active Substance: DOCUSATE SODIUM\SENNOSIDES\SENNOSIDES A AND B
  22. SENNOSIDES [Concomitant]
     Active Substance: SENNOSIDES
  23. SIMETHICONE (DIMETHICONE) [Concomitant]
     Active Substance: DIMETHICONE
  24. VITAMIN B1 [Concomitant]
     Active Substance: THIAMINE HYDROCHLORIDE
  25. VOLTAREN [Concomitant]
     Active Substance: DICLOFENAC SODIUM
  26. XARELTO [Concomitant]
     Active Substance: RIVAROXABAN
  27. ZOFRAN [Concomitant]
     Active Substance: ONDANSETRON HYDROCHLORIDE

REACTIONS (1)
  - Hospitalisation [None]
